FAERS Safety Report 17190235 (Version 4)
Quarter: 2022Q1

REPORT INFORMATION
  Report Type: Report from Study
  Country: PT (occurrence: PT)
  Receive Date: 20191223
  Receipt Date: 20220302
  Transmission Date: 20220424
  Serious: Yes (Death, Life-Threatening, Hospitalization, Other)
  Sender: FDA-Public Use
  Company Number: None

PATIENT
  Age: 47 Year
  Sex: Male

DRUGS (8)
  1. QUETIAPINE FUMARATE [Interacting]
     Active Substance: QUETIAPINE FUMARATE
     Indication: Schizophrenia
     Dosage: UNK
     Route: 065
  2. CYAMEMAZINE [Interacting]
     Active Substance: CYAMEMAZINE
     Indication: Intellectual disability
     Dosage: UNK
     Route: 065
  3. BIPERIDEN [Interacting]
     Active Substance: BIPERIDEN
     Indication: Intellectual disability
     Dosage: UNK
     Route: 065
  4. HALOPERIDOL [Interacting]
     Active Substance: HALOPERIDOL
     Indication: Intellectual disability
     Dosage: UNK
     Route: 065
  5. ZOTEPINE [Interacting]
     Active Substance: ZOTEPINE
     Indication: Intellectual disability
     Dosage: UNK
     Route: 065
  6. CARBAMAZEPINE [Interacting]
     Active Substance: CARBAMAZEPINE
     Indication: Schizophrenia
  7. CARBAMAZEPINE [Concomitant]
     Active Substance: CARBAMAZEPINE
     Indication: Product used for unknown indication
     Dosage: UNK
     Route: 065
  8. DOMPERIDONE [Concomitant]
     Active Substance: DOMPERIDONE
     Indication: Schizophrenia
     Dosage: UNK
     Route: 065

REACTIONS (6)
  - Depressed level of consciousness [Fatal]
  - Shock [Fatal]
  - Colitis ischaemic [Fatal]
  - Death [Fatal]
  - Colectomy total [Fatal]
  - Drug interaction [Unknown]
